FAERS Safety Report 23127369 (Version 1)
Quarter: 2023Q4

REPORT INFORMATION
  Report Type: Spontaneous
  Country: JP (occurrence: JP)
  Receive Date: 20231031
  Receipt Date: 20231031
  Transmission Date: 20240110
  Serious: Yes (Other)
  Sender: FDA-Public Use
  Company Number: JP-ENDO PHARMACEUTICALS INC-2023-005485

PATIENT
  Age: 68 Year
  Sex: Male
  Weight: 80 kg

DRUGS (8)
  1. DEXMEDETOMIDINE HYDROCHLORIDE [Suspect]
     Active Substance: DEXMEDETOMIDINE HYDROCHLORIDE
     Indication: Sedative therapy
     Dosage: 0.4 ?G/KG/H, INFUSION (MAINTENANCE DOSE)
     Route: 051
  2. DEXMEDETOMIDINE HYDROCHLORIDE [Suspect]
     Active Substance: DEXMEDETOMIDINE HYDROCHLORIDE
     Dosage: 4 ?G/KG/H, INFUSION (LOADING)
     Route: 051
  3. PROPOFOL [Concomitant]
     Active Substance: PROPOFOL
     Indication: Sedative therapy
     Dosage: 0.4-1.0 ML/KG/H, INFUSION (MAINTENANCE DOSE)
     Route: 051
  4. PROPOFOL [Concomitant]
     Active Substance: PROPOFOL
     Dosage: 1.25 MILLIGRAM/KILOGRAM, BOLUS
     Route: 051
  5. PENTAZOCINE [Concomitant]
     Active Substance: PENTAZOCINE
     Indication: Sedative therapy
     Dosage: 30 MILLIGRAM, SINGLE
     Route: 051
  6. VALSARTAN [Concomitant]
     Active Substance: VALSARTAN
     Indication: Hypertension
     Dosage: 80 MILLIGRAM, DAILY
     Route: 065
  7. AZELNIDIPINE [Concomitant]
     Active Substance: AZELNIDIPINE
     Indication: Hypertension
     Dosage: 8 MILLIGRAM, DAILY
     Route: 048
  8. ROSUVASTATIN CALCIUM [Concomitant]
     Active Substance: ROSUVASTATIN CALCIUM
     Indication: Hypercholesterolaemia
     Dosage: 2.5 MILLIGRAM, DAILY
     Route: 065

REACTIONS (1)
  - Arteriospasm coronary [Recovered/Resolved]
